FAERS Safety Report 24166159 (Version 4)
Quarter: 2024Q4

REPORT INFORMATION
  Report Type: Report from Study
  Country: GB (occurrence: GB)
  Receive Date: 20240802
  Receipt Date: 20241203
  Transmission Date: 20250115
  Serious: Yes (Other)
  Sender: ABBVIE
  Company Number: GB-ABBVIE-5792024

PATIENT
  Sex: Female

DRUGS (8)
  1. CARBIDOPA\LEVODOPA [Suspect]
     Active Substance: CARBIDOPA\LEVODOPA
     Indication: Parkinson^s disease
     Dosage: MD:9, CR: 1.3, ED:1.9, 20MG/5MG
     Route: 050
  2. CARBIDOPA\LEVODOPA [Suspect]
     Active Substance: CARBIDOPA\LEVODOPA
     Dosage: MD: 6.0  CR: 1.8   ED:1.8
     Route: 050
  3. CARBIDOPA\LEVODOPA [Suspect]
     Active Substance: CARBIDOPA\LEVODOPA
     Dosage: MD: 9.0  CR:  1.8    ED:1.8
     Route: 050
  4. CARBIDOPA\LEVODOPA [Suspect]
     Active Substance: CARBIDOPA\LEVODOPA
     Dosage: MD: 6.0 CR: 1.8 ED:1.8 20MG/5MG
     Route: 050
  5. ERYTHROMYCIN [Concomitant]
     Active Substance: ERYTHROMYCIN
     Indication: Product used for unknown indication
  6. AMANTADINE [Concomitant]
     Active Substance: AMANTADINE
     Indication: Product used for unknown indication
     Dosage: TIME INTERVAL: 0.33333333 DAYS: DURATION: AT 12.30, 16.30 AND 20.30
     Route: 065
  7. GABAPENTIN [Concomitant]
     Active Substance: GABAPENTIN
     Indication: Product used for unknown indication
  8. OMEPRAZOLE [Concomitant]
     Active Substance: OMEPRAZOLE
     Indication: Product used for unknown indication

REACTIONS (24)
  - Foot amputation [Unknown]
  - Tremor [Unknown]
  - Hypotension [Unknown]
  - Decreased appetite [Recovered/Resolved]
  - On and off phenomenon [Not Recovered/Not Resolved]
  - Procedural pain [Unknown]
  - Dystonia [Not Recovered/Not Resolved]
  - Dyskinesia [Not Recovered/Not Resolved]
  - Weight decreased [Unknown]
  - Anxiety [Unknown]
  - Abnormal dreams [Not Recovered/Not Resolved]
  - Stoma site infection [Not Recovered/Not Resolved]
  - Headache [Recovering/Resolving]
  - Fall [Unknown]
  - Pain in extremity [Unknown]
  - Freezing phenomenon [Recovering/Resolving]
  - Depressed mood [Not Recovered/Not Resolved]
  - Therapeutic product effect variable [Unknown]
  - Musculoskeletal disorder [Unknown]
  - Dizziness [Unknown]
  - Confusional state [Recovering/Resolving]
  - Bowel movement irregularity [Recovered/Resolved]
  - Device leakage [Not Recovered/Not Resolved]
  - Device dislocation [Unknown]

NARRATIVE: CASE EVENT DATE: 20240101
